FAERS Safety Report 6200696-8 (Version None)
Quarter: 2009Q2

REPORT INFORMATION
  Report Type: 
  Country: None (occurrence: None)
  Receive Date: 20090522
  Receipt Date: 20090513
  Transmission Date: 20091009
  Serious: Yes (Disabling, Other)
  Sender: FDA-Public Use
  Company Number: US-MERCK-0811USA03168

PATIENT
  Age: 53 Year
  Sex: Female

DRUGS (4)
  1. FOSAMAX [Suspect]
     Indication: OSTEOPOROSIS PROPHYLAXIS
     Route: 048
     Dates: start: 20020101, end: 20060101
  2. CLARINEX [Concomitant]
     Indication: SEASONAL ALLERGY
     Route: 065
     Dates: start: 20020101, end: 20060101
  3. ZYRTEC [Concomitant]
     Indication: SEASONAL ALLERGY
     Route: 065
     Dates: start: 20020101, end: 20060101
  4. TRIAMCINOLONE [Concomitant]
     Indication: INADEQUATE LUBRICATION
     Route: 065
     Dates: start: 20020101, end: 20050101

REACTIONS (8)
  - ADVERSE EVENT [None]
  - ANKLE FRACTURE [None]
  - ANXIETY [None]
  - DEPRESSION [None]
  - FACIAL PALSY [None]
  - HORMONE THERAPY [None]
  - RESORPTION BONE INCREASED [None]
  - TEMPOROMANDIBULAR JOINT SYNDROME [None]
